FAERS Safety Report 13755938 (Version 1)
Quarter: 2017Q3

REPORT INFORMATION
  Report Type: Report from Study
  Country: BR (occurrence: BR)
  Receive Date: 20170714
  Receipt Date: 20170714
  Transmission Date: 20171127
  Serious: Yes (Death)
  Sender: FDA-Public Use
  Company Number: PHHY2017BR103934

PATIENT
  Sex: Female
  Weight: 83 kg

DRUGS (2)
  1. EXELON PATCH [Suspect]
     Active Substance: RIVASTIGMINE
     Indication: PARKINSON^S DISEASE
     Dosage: QD (IN THE MORNINGS)
     Route: 062
     Dates: end: 20170622
  2. EXELON PATCH [Suspect]
     Active Substance: RIVASTIGMINE
     Indication: MEMORY IMPAIRMENT

REACTIONS (6)
  - Infection [Unknown]
  - Renal disorder [Fatal]
  - Cardiac disorder [Fatal]
  - Lung disorder [Fatal]
  - Malaise [Unknown]
  - Organ failure [Fatal]
